FAERS Safety Report 12181802 (Version 1)
Quarter: 2016Q1

REPORT INFORMATION
  Report Type: Spontaneous
  Country: JP (occurrence: JP)
  Receive Date: 20160315
  Receipt Date: 20160315
  Transmission Date: 20160526
  Serious: Yes (Hospitalization, Other)
  Sender: FDA-Public Use
  Company Number: JP-VALIDUS PHARMACEUTICALS LLC-JP-2016VAL000416

PATIENT
  Age: 83 Year
  Sex: Male

DRUGS (7)
  1. ACECOL                             /01277402/ [Concomitant]
     Indication: CARDIAC FAILURE
  2. WARFARIN [Concomitant]
     Active Substance: WARFARIN
     Indication: ATRIAL FIBRILLATION
  3. LASIX [Suspect]
     Active Substance: FUROSEMIDE
     Indication: CARDIAC FAILURE
     Dosage: 40 MG, BID
     Route: 048
  4. ELDECALCITOL [Concomitant]
     Active Substance: ELDECALCITOL
     Indication: OSTEOPOROSIS
  5. THYRADIN-S [Concomitant]
     Active Substance: LEVOTHYROXINE
     Indication: HYPOTHYROIDISM
  6. SELARA [Suspect]
     Active Substance: EPLERENONE
     Indication: CARDIAC FAILURE
     Dosage: 50 MG, DAILY
     Route: 048
  7. ZYLORIC [Concomitant]
     Active Substance: ALLOPURINOL
     Indication: HYPERURICAEMIA

REACTIONS (1)
  - Herpes zoster [Recovered/Resolved with Sequelae]

NARRATIVE: CASE EVENT DATE: 20150910
